FAERS Safety Report 14600072 (Version 2)
Quarter: 2018Q1

REPORT INFORMATION
  Report Type: Spontaneous
  Country: CH (occurrence: CH)
  Receive Date: 20180305
  Receipt Date: 20180313
  Transmission Date: 20180509
  Serious: Yes (Life-Threatening, Hospitalization)
  Sender: FDA-Public Use
  Company Number: CH-PFIZER INC-2018084698

PATIENT
  Age: 72 Year
  Sex: Female

DRUGS (17)
  1. METFIN [Suspect]
     Active Substance: METFORMIN HYDROCHLORIDE
     Indication: TYPE 2 DIABETES MELLITUS
     Dosage: 1000 MG, 2X/DAY 1-0-1 (LONG-TERM THERAPY)
     Route: 048
     Dates: end: 20180207
  2. XALATAN [Concomitant]
     Active Substance: LATANOPROST
     Dosage: GTT, (LONG-TERM THERAPY)
  3. LACRINORM [Concomitant]
     Active Substance: CARBOMER
     Dosage: GTT, (LONG-TERM THERAPY)
  4. TOREM /01036501/ [Suspect]
     Active Substance: TORSEMIDE
     Indication: HYPERTENSION
     Dosage: 7.5 MG, 1X/DAY 5MG-10MG-0 IN HOSPITAL 5MG/D UNTIL 12FEB2018 (LONG-TERM THERAPY)
     Route: 048
     Dates: end: 20180212
  5. CHONDROSULF [Concomitant]
     Active Substance: CHONDROITIN SULFATE (CHICKEN)
     Dosage: 800 MG, 1X/DAY 1-0-0 (LONG-TERM THERAPY)
     Dates: end: 20180207
  6. INVOKANA [Suspect]
     Active Substance: CANAGLIFLOZIN
     Indication: TYPE 2 DIABETES MELLITUS
     Dosage: 1 DF, UNK
     Route: 048
     Dates: start: 2018, end: 20180207
  7. METFIN [Suspect]
     Active Substance: METFORMIN HYDROCHLORIDE
     Dosage: 1000 MG, 2X/DAY 1-0-1 (THEN STOP (SWITCH)
     Dates: start: 20180212
  8. BELOC ZOK [Interacting]
     Active Substance: METOPROLOL SUCCINATE
     Indication: HYPERTENSION
     Dosage: 100 MG, 1X/DAY 1-0-0 (LONG-TERM THERAPY)
     Route: 048
     Dates: end: 20180212
  9. FRAGMIN [Suspect]
     Active Substance: DALTEPARIN SODIUM
     Indication: PROPHYLAXIS
     Dosage: 5000 IU, 1X/DAY
     Route: 058
     Dates: start: 20180207, end: 20180212
  10. AMLODIPINE [Suspect]
     Active Substance: AMLODIPINE BESYLATE
     Indication: HYPERTENSION
     Dosage: 10 MG, 1X/DAY 0-0-1 (LONG-TERM THERAPY)
     Route: 048
     Dates: end: 20180212
  11. ZESTRIL [Suspect]
     Active Substance: LISINOPRIL
     Indication: HYPERTENSION
     Dosage: 10 MG, 1X/DAY 1/2-0-0
     Route: 048
     Dates: end: 20180212
  12. TARDYFERON [Concomitant]
     Active Substance: FERROUS SULFATE
     Dosage: 1 DF, 1X/DAY 0-1-0 (LONG-TERM THERAPY)
     Dates: end: 20180207
  13. VI-DE 3 [Concomitant]
     Active Substance: CHOLECALCIFEROL
     Dosage: 4500 IU, MONTHLY (LONG-TERM THERAPY)
     Route: 048
  14. PARAGOL [Concomitant]
     Active Substance: MINERAL OIL\PHENOLPHTHALEIN
     Dosage: 20 ML, AS NEEDED
     Dates: end: 20180207
  15. PADMED CIRCOSAN [Concomitant]
     Active Substance: CALCIUM SULFATE\HERBALS
     Dates: end: 20180207
  16. ASPIRIN CARDIO [Interacting]
     Active Substance: ASPIRIN
     Indication: PROPHYLAXIS
     Dosage: 100 MG, 1X/DAY 1-0-0 (LONG-TERM THERAPY)
     Route: 048
     Dates: end: 20180212
  17. XENALON [Concomitant]
     Dosage: 25 MG, 1X/DAY 1/4-0-0 (LONG-TERM THERAPY)
     Dates: end: 20180207

REACTIONS (7)
  - Melaena [Recovered/Resolved]
  - Diabetic ketoacidosis [Recovered/Resolved]
  - Blood pressure decreased [Recovered/Resolved]
  - Haemorrhagic anaemia [Recovering/Resolving]
  - Drug interaction [Unknown]
  - Haemorrhagic erosive gastritis [Recovered/Resolved]
  - Gastric ulcer [Unknown]

NARRATIVE: CASE EVENT DATE: 201802
